FAERS Safety Report 12326317 (Version 2)
Quarter: 2016Q2

REPORT INFORMATION
  Report Type: Spontaneous
  Country: US (occurrence: US)
  Receive Date: 20160503
  Receipt Date: 20160513
  Transmission Date: 20160815
  Serious: No
  Sender: FDA-Public Use
  Company Number: US-009507513-1604USA016695

PATIENT
  Age: 76 Year
  Sex: Male

DRUGS (1)
  1. PROVENTIL [Suspect]
     Active Substance: ALBUTEROL
     Indication: ASTHMA
     Dosage: 90 MICROGRAM, AS NEEDED
     Route: 055
     Dates: start: 2013

REACTIONS (2)
  - Dyspnoea [Recovering/Resolving]
  - Drug dose omission [Unknown]

NARRATIVE: CASE EVENT DATE: 20160423
